FAERS Safety Report 8520213-7 (Version None)
Quarter: 2012Q3

REPORT INFORMATION
  Report Type: 
  Country: None (occurrence: None)
  Receive Date: 20120709
  Receipt Date: 20120623
  Transmission Date: 20120928
  Serious: Yes (Other)
  Sender: FDA-Public Use
  Company Number: 2012AP001964

PATIENT
  Age: 70 Year
  Sex: Female

DRUGS (3)
  1. OMEPRAZOLE [Suspect]
     Indication: GASTROOESOPHAGEAL SPHINCTER INSUFFICIENCY
  2. OMEPRAZOLE [Suspect]
     Indication: OFF LABEL USE
  3. LOSARTAN POTASSIUM [Suspect]
     Indication: PRODUCT USED FOR UNKNOWN INDICATION

REACTIONS (13)
  - ANHEDONIA [None]
  - DECREASED APPETITE [None]
  - HALLUCINATIONS, MIXED [None]
  - BRADYKINESIA [None]
  - APHASIA [None]
  - MENTAL DISORDER [None]
  - DEPRESSION [None]
  - SOCIAL AVOIDANT BEHAVIOUR [None]
  - MENTAL IMPAIRMENT [None]
  - APALLIC SYNDROME [None]
  - OFF LABEL USE [None]
  - CONFUSIONAL STATE [None]
  - HYPONATRAEMIA [None]
